FAERS Safety Report 6038594-5 (Version None)
Quarter: 2009Q1

REPORT INFORMATION
  Report Type: 
  Country: None (occurrence: None)
  Receive Date: 20090115
  Receipt Date: 20090109
  Transmission Date: 20090719
  Serious: Yes (Other)
  Sender: FDA-Public Use
  Company Number: B0551985A

PATIENT
  Age: 54 Year
  Sex: Male

DRUGS (8)
  1. MELPHALAN [Suspect]
     Indication: STEM CELL TRANSPLANT
     Route: 042
     Dates: start: 20050501, end: 20050501
  2. BUSULFAN [Suspect]
     Indication: BONE MARROW TRANSPLANT
     Route: 065
     Dates: start: 20061101
  3. PREDNISOLONE [Suspect]
     Dosage: 10MG PER DAY
     Route: 065
  4. BORTEZOMIB [Suspect]
     Indication: MULTIPLE MYELOMA
     Route: 042
     Dates: start: 20071101
  5. DEXAMETHASONE TAB [Suspect]
     Indication: MULTIPLE MYELOMA
     Route: 065
     Dates: start: 20071101
  6. FLUDARABINE PHOSPHATE [Suspect]
     Indication: ALLOGENIC BONE MARROW TRANSPLANTATION THERAPY
     Route: 065
     Dates: start: 20061101
  7. TACROLIMUS [Suspect]
     Route: 048
  8. METHYLPREDNISOLONE ACETATE [Suspect]
     Indication: INTERSTITIAL LUNG DISEASE
     Route: 042

REACTIONS (14)
  - ANAEMIA [None]
  - ASPARTATE AMINOTRANSFERASE INCREASED [None]
  - BLOOD BILIRUBIN UNCONJUGATED INCREASED [None]
  - BLOOD FIBRINOGEN DECREASED [None]
  - BLOOD LACTATE DEHYDROGENASE INCREASED [None]
  - CHEST PAIN [None]
  - DYSPNOEA [None]
  - ECCHYMOSIS [None]
  - HAPTOGLOBIN DECREASED [None]
  - INTERSTITIAL LUNG DISEASE [None]
  - PETECHIAE [None]
  - PROTHROMBIN TIME PROLONGED [None]
  - THROMBOCYTOPENIA [None]
  - THROMBOTIC MICROANGIOPATHY [None]
